FAERS Safety Report 8471449-5 (Version None)
Quarter: 2012Q2

REPORT INFORMATION
  Report Type: 
  Country: None (occurrence: None)
  Receive Date: 20120627
  Receipt Date: 20120622
  Transmission Date: 20120825
  Serious: Yes (Other)
  Sender: FDA-Public Use
  Company Number: PHHY2012MX015369

PATIENT
  Age: 54 Year
  Sex: Female

DRUGS (2)
  1. ZOLEDRONOC ACID [Suspect]
     Indication: OSTEOPOROSIS
     Dosage: 5 MG/100 ML EACH YEAR
     Route: 042
     Dates: start: 20110219
  2. VITAMINS NOS [Concomitant]
     Indication: PAIN
     Dosage: UNK UKN, UNK

REACTIONS (5)
  - GAIT DISTURBANCE [None]
  - BLOOD PRESSURE DECREASED [None]
  - FIBROMYALGIA [None]
  - EMOTIONAL DISTRESS [None]
  - HYPOTHERMIA [None]
